FAERS Safety Report 7128343-1 (Version None)
Quarter: 2010Q4

REPORT INFORMATION
  Report Type: 
  Country: None (occurrence: None)
  Receive Date: 20101130
  Receipt Date: 20101119
  Transmission Date: 20110411
  Serious: Yes (Hospitalization)
  Sender: FDA-Public Use
  Company Number: US-ASTRAZENECA-2010SE55384

PATIENT
  Age: 64 Year
  Sex: Female
  Weight: 122.5 kg

DRUGS (19)
  1. SYMBICORT [Suspect]
     Indication: CHRONIC OBSTRUCTIVE PULMONARY DISEASE
     Dosage: 320 MCGS BID
     Route: 055
     Dates: start: 20100901
  2. AMBIEN [Concomitant]
     Dosage: PRN
  3. CALCIUM [Concomitant]
  4. ASCORBIC ACID [Concomitant]
  5. THEOPHYLLINE [Concomitant]
     Dosage: 600 MGS
  6. PROMETHAZINE [Concomitant]
     Dosage: PRN
  7. PROVENTIL [Concomitant]
  8. ALBUTEROL [Concomitant]
     Indication: CHRONIC OBSTRUCTIVE PULMONARY DISEASE
     Dosage: PRN
  9. FOSAMAX [Concomitant]
  10. NASONEX [Concomitant]
     Indication: MULTIPLE ALLERGIES
     Dosage: TWO PUFFS DAILY
  11. SPIRIVA [Concomitant]
     Indication: CHRONIC OBSTRUCTIVE PULMONARY DISEASE
     Dosage: DAILY
  12. POTASSIUM CHLORIDE [Concomitant]
  13. MOBIC [Concomitant]
  14. DETROL [Concomitant]
     Dosage: 4 MGS
  15. SINGULAIR [Concomitant]
  16. FUROSEMIDE [Concomitant]
  17. SIMVASTATIN [Concomitant]
  18. LISINOPRIL [Concomitant]
  19. ASPIRIN [Concomitant]

REACTIONS (3)
  - ABNORMAL DREAMS [None]
  - BRONCHITIS [None]
  - EMPHYSEMA [None]
